FAERS Safety Report 5891584-5 (Version None)
Quarter: 2008Q3

REPORT INFORMATION
  Report Type: 
  Country: None (occurrence: None)
  Receive Date: 20080922
  Receipt Date: 20080910
  Transmission Date: 20090109
  Serious: Yes (Other)
  Sender: FDA-Public Use
  Company Number: BR-ROCHE-586103

PATIENT
  Age: 24 Year
  Sex: Male

DRUGS (1)
  1. ROACUTAN [Suspect]
     Indication: ACNE
     Route: 048
     Dates: start: 20080701, end: 20080910

REACTIONS (1)
  - THYROID NEOPLASM [None]
